FAERS Safety Report 20527074 (Version 1)
Quarter: 2022Q1

REPORT INFORMATION
  Report Type: Spontaneous
  Country: DE (occurrence: DE)
  Receive Date: 20220228
  Receipt Date: 20220228
  Transmission Date: 20220424
  Serious: Yes (Hospitalization, Other)
  Sender: FDA-Public Use
  Company Number: DE-002147023-NVSC2021DE070355

PATIENT
  Sex: Male
  Weight: 87 kg

DRUGS (33)
  1. PREDNISOLONE [Suspect]
     Active Substance: PREDNISOLONE
     Indication: Product used for unknown indication
     Dosage: UNK
     Route: 065
  2. COSENTYX [Suspect]
     Active Substance: SECUKINUMAB
     Indication: Ankylosing spondylitis
     Dosage: 300 MG, ONCE/SINGLE
     Route: 065
     Dates: start: 20210714, end: 20210714
  3. COSENTYX [Suspect]
     Active Substance: SECUKINUMAB
     Dosage: 300 MG, ONCE/SINGLE
     Route: 065
     Dates: start: 20210414, end: 20210414
  4. COSENTYX [Suspect]
     Active Substance: SECUKINUMAB
     Dosage: 300 MG, ONCE/SINGLE
     Route: 065
     Dates: start: 20210217, end: 20210217
  5. COSENTYX [Suspect]
     Active Substance: SECUKINUMAB
     Dosage: 300 MG, ONCE/SINGLE
     Route: 065
     Dates: start: 20211027, end: 20211027
  6. COSENTYX [Suspect]
     Active Substance: SECUKINUMAB
     Dosage: 300 MG, ONCE/SINGLE
     Route: 065
     Dates: start: 20201216, end: 20201216
  7. COSENTYX [Suspect]
     Active Substance: SECUKINUMAB
     Dosage: 300 MG, ONCE/SINGLE
     Route: 065
     Dates: start: 20210609, end: 20210609
  8. COSENTYX [Suspect]
     Active Substance: SECUKINUMAB
     Dosage: 300 MG, ONCE/SINGLE
     Route: 065
     Dates: start: 20210120, end: 20210120
  9. COSENTYX [Suspect]
     Active Substance: SECUKINUMAB
     Dosage: 300 MG, ONCE/SINGLE
     Route: 065
     Dates: start: 20201125, end: 20201125
  10. COSENTYX [Suspect]
     Active Substance: SECUKINUMAB
     Dosage: 300 MG, ONCE/SINGLE
     Route: 065
     Dates: start: 20210512, end: 20210512
  11. COSENTYX [Suspect]
     Active Substance: SECUKINUMAB
     Dosage: 300 MG, ONCE/SINGLE
     Route: 065
     Dates: start: 20210922, end: 20210922
  12. COSENTYX [Suspect]
     Active Substance: SECUKINUMAB
     Dosage: 300 MG, ONCE/SINGLE
     Route: 065
     Dates: start: 20201202, end: 20201202
  13. COSENTYX [Suspect]
     Active Substance: SECUKINUMAB
     Dosage: 300 MG, ONCE/SINGLE
     Route: 065
     Dates: start: 20210317, end: 20210317
  14. COSENTYX [Suspect]
     Active Substance: SECUKINUMAB
     Dosage: 300 MG, ONCE/SINGLE
     Route: 065
     Dates: start: 20211201, end: 20211201
  15. COSENTYX [Suspect]
     Active Substance: SECUKINUMAB
     Dosage: 300 MG, ONCE/SINGLE
     Route: 065
     Dates: start: 20210818, end: 20210818
  16. COSENTYX [Suspect]
     Active Substance: SECUKINUMAB
     Dosage: 300 MG, ONCE/SINGLE
     Route: 065
     Dates: start: 20201223, end: 20201223
  17. COSENTYX [Suspect]
     Active Substance: SECUKINUMAB
     Dosage: 300 MG, ONCE/SINGLE
     Route: 065
     Dates: start: 20201209, end: 20201209
  18. ASPIRIN [Concomitant]
     Active Substance: ASPIRIN
     Indication: Coronary artery disease
     Dosage: 100 MG, QD (IN AFTERNOON) (0-1-0)
     Route: 048
     Dates: start: 20201025, end: 20211221
  19. METHYLPREDNISOLONE [Concomitant]
     Active Substance: METHYLPREDNISOLONE
     Indication: Ankylosing spondylitis
     Dosage: 4 MG, QD (ONCE IN THE MORNING,1-0-0)
     Route: 048
     Dates: start: 20140723, end: 20201215
  20. METHYLPREDNISOLONE [Concomitant]
     Active Substance: METHYLPREDNISOLONE
     Dosage: 3 MG
     Route: 048
     Dates: start: 20201216, end: 20210302
  21. TAMSULOSIN [Concomitant]
     Active Substance: TAMSULOSIN
     Indication: Benign prostatic hyperplasia
     Dosage: 0.4 MG, QD (IN THE EVENING)
     Route: 048
     Dates: start: 20201117, end: 20210901
  22. ELIQUIS [Concomitant]
     Active Substance: APIXABAN
     Indication: Cardiac failure
     Dosage: 5 MG, BID (ONCE IN THE MORNING, ONCE IN THE EVENING)
     Route: 048
     Dates: start: 20211221
  23. ATORVASTATIN CALCIUM\EZETIMIBE [Concomitant]
     Active Substance: ATORVASTATIN CALCIUM\EZETIMIBE
     Indication: Hyperlipidaemia
     Dosage: 1 DOSAGE FORM (10/20 MG, EVERY SECOND DAY)
     Route: 048
     Dates: start: 20190615, end: 20211220
  24. PANTOZOL [Concomitant]
     Active Substance: PANTOPRAZOLE SODIUM
     Indication: Prophylaxis
     Dosage: 40 MG (EVERY SECOND DAY)
     Route: 048
     Dates: start: 20200723
  25. RAMIPRIL [Concomitant]
     Active Substance: RAMIPRIL
     Indication: Coronary artery disease
     Dosage: 5 MG, QD (1-0-0)
     Route: 048
     Dates: start: 20211221
  26. RAMIPRIL [Concomitant]
     Active Substance: RAMIPRIL
     Dosage: 2.5 MG, QD (1-0-0) ONCE IN THE MORNING
     Route: 048
     Dates: start: 20210615, end: 20211220
  27. HYDROCORTISONE [Concomitant]
     Active Substance: HYDROCORTISONE
     Indication: Ankylosing spondylitis
     Dosage: 20 MG (20MG-10 MG-0)
     Route: 048
     Dates: start: 20210629
  28. VITAMIN D [Concomitant]
     Active Substance: VITAMIN D NOS
     Indication: Osteoporosis prophylaxis
     Dosage: 1000 IU, QD (ONCE IN THE MORNING, 1-0-0)
     Route: 048
     Dates: start: 20080314
  29. PIROXICAM [Concomitant]
     Active Substance: PIROXICAM
     Indication: Ankylosing spondylitis
     Dosage: 20 MG, QD (ONCE IN THE MORNING, 1-0-0)
     Route: 048
     Dates: start: 20080314
  30. METOPROLOL [Concomitant]
     Active Substance: METOPROLOL
     Indication: Coronary artery disease
     Dosage: 100 MG (100MG 1/4-0-1/3)
     Route: 048
     Dates: start: 20211221
  31. TORSEMIDE [Concomitant]
     Active Substance: TORSEMIDE
     Indication: Cardiac failure
     Dosage: 10 MG, PRN
     Route: 048
     Dates: start: 20210615, end: 20210901
  32. TORSEMIDE [Concomitant]
     Active Substance: TORSEMIDE
     Dosage: 10 MG, BID (ONCE IN THE MORNING AND ONCE IN THE EVENING)
     Route: 048
     Dates: start: 20211221
  33. TORSEMIDE [Concomitant]
     Active Substance: TORSEMIDE
     Dosage: 5 MG, QD (ONCE IN THE MORNING, 1-0-0)
     Route: 048
     Dates: start: 20200723, end: 20210302

REACTIONS (6)
  - Arthritis [Recovering/Resolving]
  - Cellulitis [Recovering/Resolving]
  - Adrenal insufficiency [Not Recovered/Not Resolved]
  - Fatigue [Recovering/Resolving]
  - Type 2 diabetes mellitus [Not Recovered/Not Resolved]
  - Onychomycosis [Not Recovered/Not Resolved]

NARRATIVE: CASE EVENT DATE: 20210120
